FAERS Safety Report 10251078 (Version 2)
Quarter: 2014Q3

REPORT INFORMATION
  Report Type: Report from Study
  Country: CA (occurrence: CA)
  Receive Date: 20140620
  Receipt Date: 20140707
  Transmission Date: 20150326
  Serious: Yes (Hospitalization)
  Sender: FDA-Public Use
  Company Number: CA-ABBVIE-14P-028-1248593-00

PATIENT
  Age: 46 Year
  Sex: Female
  Weight: 50.6 kg

DRUGS (1)
  1. HUMIRA [Suspect]
     Active Substance: ADALIMUMAB
     Indication: CROHN^S DISEASE
     Route: 058
     Dates: start: 20130423, end: 20140614

REACTIONS (23)
  - Bile acid malabsorption [Not Recovered/Not Resolved]
  - Rash [Recovered/Resolved]
  - Arthralgia [Unknown]
  - Balance disorder [Unknown]
  - Migraine [Unknown]
  - Intestinal stenosis [Unknown]
  - Diarrhoea [Not Recovered/Not Resolved]
  - Intestinal fibrosis [Unknown]
  - Purulent discharge [Recovered/Resolved]
  - Dizziness [Unknown]
  - Malabsorption [Not Recovered/Not Resolved]
  - Nausea [Recovering/Resolving]
  - Irritable bowel syndrome [Not Recovered/Not Resolved]
  - Loss of consciousness [Recovered/Resolved]
  - Headache [Not Recovered/Not Resolved]
  - Fall [Recovered/Resolved]
  - Vertigo [Not Recovered/Not Resolved]
  - Fatigue [Not Recovered/Not Resolved]
  - Anal abscess [Recovered/Resolved]
  - Mobility decreased [Unknown]
  - Musculoskeletal stiffness [Unknown]
  - Memory impairment [Unknown]
  - Visual acuity reduced [Unknown]

NARRATIVE: CASE EVENT DATE: 201304
